FAERS Safety Report 14477663 (Version 1)
Quarter: 2018Q1

REPORT INFORMATION
  Report Type: Report from Study
  Country: US (occurrence: US)
  Receive Date: 20180201
  Receipt Date: 20180201
  Transmission Date: 20180509
  Serious: No
  Sender: FDA-Public Use
  Company Number: US-EXELIXIS-CABO-17008220

PATIENT
  Age: 63 Year
  Sex: Male

DRUGS (1)
  1. COMETRIQ [Suspect]
     Active Substance: CABOZANTINIB S-MALATE
     Indication: THYROID CANCER
     Dosage: 140 MG, QD
     Route: 048
     Dates: start: 20170111

REACTIONS (14)
  - Pain of skin [Unknown]
  - Alopecia [Unknown]
  - Asthenia [Unknown]
  - Decreased appetite [Unknown]
  - Peripheral swelling [Unknown]
  - Glossitis [Unknown]
  - Dehydration [Unknown]
  - Skin ulcer [Unknown]
  - Dry skin [Unknown]
  - Vomiting [Unknown]
  - Muscle atrophy [Unknown]
  - Stomatitis [Unknown]
  - Fatigue [Unknown]
  - Nausea [Unknown]

NARRATIVE: CASE EVENT DATE: 20170111
